FAERS Safety Report 18513144 (Version 2)
Quarter: 2020Q4

REPORT INFORMATION
  Report Type: Other
  Country: US (occurrence: US)
  Receive Date: 20201117
  Receipt Date: 20201123
  Transmission Date: 20210114
  Serious: Yes (Other)
  Sender: FDA-Public Use
  Company Number: US-ROCHE-2711990

PATIENT
  Sex: Female

DRUGS (29)
  1. XOLAIR [Suspect]
     Active Substance: OMALIZUMAB
     Indication: CHRONIC SPONTANEOUS URTICARIA
     Route: 058
  2. FLUOXETINE HCL [Concomitant]
     Active Substance: FLUOXETINE HYDROCHLORIDE
     Dosage: AT NOON
     Route: 048
  3. MIDODRINE HCL [Concomitant]
     Active Substance: MIDODRINE HYDROCHLORIDE
     Dosage: TAKE TWO TABLETS BY MOUTH THREE TIMES PER DAY
     Route: 048
  4. TOPAMAX [Concomitant]
     Active Substance: TOPIRAMATE
     Dosage: USE AS DIRECTED
  5. TRAZODONE HYDROCHLORIDE. [Concomitant]
     Active Substance: TRAZODONE HYDROCHLORIDE
     Dosage: AT BEDTIME
     Route: 048
  6. ZOFRAN [Concomitant]
     Active Substance: ONDANSETRON HYDROCHLORIDE
     Dosage: TAKE 1 TABLET AS NEEDED
     Route: 048
  7. ZYPREXA [Concomitant]
     Active Substance: OLANZAPINE
     Route: 048
     Dates: start: 20200903
  8. SINGULAIR [Concomitant]
     Active Substance: MONTELUKAST SODIUM
  9. EFFEXOR XR [Concomitant]
     Active Substance: VENLAFAXINE HYDROCHLORIDE
     Route: 048
  10. IMITREX [Concomitant]
     Active Substance: SUMATRIPTAN SUCCINATE
     Dosage: 1 TABLET BY MOUTH AS NEEDED
     Route: 048
  11. KAPSPARGO SPRINKLE [Concomitant]
     Route: 048
  12. XANAX [Concomitant]
     Active Substance: ALPRAZOLAM
     Dosage: TAKE 1 TABLET BY MOUTH THREE TIMES PER DAY
     Route: 048
  13. ABILIFY [Concomitant]
     Active Substance: ARIPIPRAZOLE
     Route: 048
  14. MYCOPHENOLATE MOFETIL. [Suspect]
     Active Substance: MYCOPHENOLATE MOFETIL
     Indication: CHRONIC SPONTANEOUS URTICARIA
     Dosage: TWO TABLET TWO TIMES EVERY DAY
     Route: 048
     Dates: start: 20200818
  15. XOLAIR [Suspect]
     Active Substance: OMALIZUMAB
  16. HYDROXYZINE HCL [Concomitant]
     Active Substance: HYDROXYZINE HYDROCHLORIDE
     Route: 048
  17. TRAZODONE HYDROCHLORIDE. [Concomitant]
     Active Substance: TRAZODONE HYDROCHLORIDE
     Dosage: AT BEDTIME
     Route: 048
  18. ZYRTEC (UNITED STATES) [Concomitant]
     Route: 048
  19. CYCLOBENZAPRINE HCL [Concomitant]
     Active Substance: CYCLOBENZAPRINE HYDROCHLORIDE
     Route: 048
  20. CYMBALTA [Concomitant]
     Active Substance: DULOXETINE HYDROCHLORIDE
     Route: 048
  21. EPIPEN [Concomitant]
     Active Substance: EPINEPHRINE
     Indication: ANAPHYLACTIC REACTION
     Dosage: 0.3 MG /0.3 ML AS NEEDED
     Route: 030
  22. DECADRON [Concomitant]
     Active Substance: DEXAMETHASONE
  23. XOLAIR [Suspect]
     Active Substance: OMALIZUMAB
  24. ASMANEX HFA [Concomitant]
     Active Substance: MOMETASONE FUROATE
     Dosage: 100 MCG/ ACTUATION?TWO PUFFS VIA NOSTRILS TWICE PER DAY
     Route: 055
  25. EFFEXOR XR [Concomitant]
     Active Substance: VENLAFAXINE HYDROCHLORIDE
     Route: 048
  26. BENADRYL [Concomitant]
     Active Substance: DIPHENHYDRAMINE HYDROCHLORIDE
     Dosage: 2 CAPSULE BY MOUTH AS NEEDED
     Route: 048
  27. LIPITOR [Concomitant]
     Active Substance: ATORVASTATIN CALCIUM
     Route: 048
  28. OMEPRAZOLE. [Concomitant]
     Active Substance: OMEPRAZOLE
     Dosage: TAKE TWO CAPSULES BY MOUTH DAILY
     Route: 048
  29. TYLENOL [Concomitant]
     Active Substance: ACETAMINOPHEN
     Dosage: TAKE TWO TABLETS BY MOUTH AS NEEDED
     Route: 048

REACTIONS (6)
  - Dental caries [Unknown]
  - Off label use [Unknown]
  - Intentional product use issue [Unknown]
  - Angioedema [Unknown]
  - Vomiting [Unknown]
  - Tachycardia [Unknown]
